FAERS Safety Report 12941457 (Version 1)
Quarter: 2016Q4

REPORT INFORMATION
  Report Type: Spontaneous
  Country: US (occurrence: US)
  Receive Date: 20161115
  Receipt Date: 20161115
  Transmission Date: 20170207
  Serious: Yes (Hospitalization)
  Sender: FDA-Public Use
  Company Number: None

PATIENT
  Age: 92 Year
  Sex: Male
  Weight: 129.4 kg

DRUGS (13)
  1. TESSALON [Concomitant]
     Active Substance: BENZONATATE
  2. LASIX [Concomitant]
     Active Substance: FUROSEMIDE
  3. PRILOSEC [Concomitant]
     Active Substance: OMEPRAZOLE MAGNESIUM
  4. RISPERDAL CONSTA [Suspect]
     Active Substance: RISPERIDONE
  5. ALLOPURINOL. [Concomitant]
     Active Substance: ALLOPURINOL
  6. OXYCODONE AND ACETAMINOPHEN [Suspect]
     Active Substance: ACETAMINOPHEN\OXYCODONE HYDROCHLORIDE
     Indication: PAIN
     Dosage: RECENT??5-325MG
     Route: 048
  7. COUMADIN [Concomitant]
     Active Substance: WARFARIN SODIUM
  8. BACTRIM [Suspect]
     Active Substance: SULFAMETHOXAZOLE\TRIMETHOPRIM
  9. SERTRALINE [Suspect]
     Active Substance: SERTRALINE HYDROCHLORIDE
  10. AMARYL [Concomitant]
     Active Substance: GLIMEPIRIDE
  11. LIPITOR [Concomitant]
     Active Substance: ATORVASTATIN CALCIUM
  12. HCTZ [Suspect]
     Active Substance: HYDROCHLOROTHIAZIDE
  13. TOPROL XL [Concomitant]
     Active Substance: METOPROLOL SUCCINATE

REACTIONS (5)
  - Compression fracture [None]
  - Respiratory failure [None]
  - Encephalopathy [None]
  - Lethargy [None]
  - Apnoea [None]

NARRATIVE: CASE EVENT DATE: 20150705
